FAERS Safety Report 9178653 (Version 2)
Quarter: 2013Q2

REPORT INFORMATION
  Report Type: Spontaneous
  Country: BE (occurrence: BE)
  Receive Date: 20130321
  Receipt Date: 20130506
  Transmission Date: 20140414
  Serious: Yes (Hospitalization)
  Sender: FDA-Public Use
  Company Number: BE-GLAXOSMITHKLINE-B0876094A

PATIENT
  Age: 56 Year
  Sex: Male
  Weight: 127 kg

DRUGS (3)
  1. ALLI [Suspect]
     Indication: OBESITY
     Route: 048
     Dates: end: 20130120
  2. L-THYROXINE [Concomitant]
     Indication: THYROIDECTOMY
     Dosage: 200UG PER DAY
     Route: 048
  3. COVERAM [Concomitant]
     Indication: HYPERTENSION
     Route: 048

REACTIONS (4)
  - Abdominal pain upper [Recovered/Resolved]
  - Back pain [Recovered/Resolved]
  - Nausea [Recovered/Resolved]
  - Pain [Recovered/Resolved]
